FAERS Safety Report 25160354 (Version 2)
Quarter: 2025Q2

REPORT INFORMATION
  Report Type: Spontaneous
  Country: GB (occurrence: GB)
  Receive Date: 20250404
  Receipt Date: 20250424
  Transmission Date: 20250716
  Serious: Yes (Death, Other)
  Sender: MYLAN
  Company Number: GB-MYLANLABS-2025M1029013

PATIENT
  Sex: Female

DRUGS (8)
  1. CLOZARIL [Suspect]
     Active Substance: CLOZAPINE
     Indication: Schizophrenia
     Dosage: 250 MILLIGRAM, PM (NOCTE)
     Dates: start: 20131011
  2. CYCLIZINE [Concomitant]
     Active Substance: CYCLIZINE
  3. HALOPERIDOL [Concomitant]
     Active Substance: HALOPERIDOL
     Indication: Nausea
  4. LEVOMEPROMAZINE [Concomitant]
     Active Substance: LEVOMEPROMAZINE
  5. MIDAZOLAM [Concomitant]
     Active Substance: MIDAZOLAM
  6. MORPHINE SULFATE [Concomitant]
     Active Substance: MORPHINE SULFATE
  7. GLYCOPYRROLATE [Concomitant]
     Active Substance: GLYCOPYRROLATE
  8. GLYCOPYRROLATE [Concomitant]
     Active Substance: GLYCOPYRROLATE

REACTIONS (12)
  - Lung neoplasm malignant [Fatal]
  - Hypokalaemia [Unknown]
  - Schizophrenia [Unknown]
  - Pneumonia [Unknown]
  - Mental disorder [Unknown]
  - Chronic obstructive pulmonary disease [Unknown]
  - Coronavirus infection [Unknown]
  - Iron deficiency anaemia [Unknown]
  - Anxiety disorder [Unknown]
  - Gastric polyps [Unknown]
  - Glucose tolerance impaired [Unknown]
  - Vitamin D deficiency [Unknown]

NARRATIVE: CASE EVENT DATE: 20170630
